FAERS Safety Report 17915280 (Version 1)
Quarter: 2020Q2

REPORT INFORMATION
  Report Type: Report from Study
  Country: BE (occurrence: BE)
  Receive Date: 20200619
  Receipt Date: 20200619
  Transmission Date: 20200714
  Serious: Yes (Hospitalization, Other)
  Sender: FDA-Public Use
  Company Number: BE-INTERCEPT-PM2020000997

PATIENT
  Age: 56 Year
  Sex: Male

DRUGS (11)
  1. URSOCHOL [Concomitant]
     Active Substance: URSODIOL
     Dosage: 300 MG, BID
     Route: 048
     Dates: start: 20200427
  2. STEOVIT D3 [Concomitant]
     Active Substance: CALCIUM CARBONATE\CHOLECALCIFEROL
     Dosage: 1000 MG, QD
     Route: 048
     Dates: start: 202004
  3. OBETICHOLIC ACID [Suspect]
     Active Substance: OBETICHOLIC ACID
     Indication: PRIMARY BILIARY CHOLANGITIS
     Dosage: 5 MG, QD
     Route: 048
     Dates: start: 20130618
  4. OBETICHOLIC ACID [Suspect]
     Active Substance: OBETICHOLIC ACID
     Dosage: 5 MG, QD
     Route: 048
     Dates: start: 20200424
  5. PLAQUENIL                          /00072602/ [Concomitant]
     Active Substance: HYDROXYCHLOROQUINE DIPHOSPHATE
     Dosage: 200 MG, UNK
     Dates: start: 20200416, end: 20200416
  6. PANTOMED                           /00178901/ [Concomitant]
     Active Substance: DEXPANTHENOL
     Dosage: 20 MG, BID
     Route: 048
     Dates: start: 20200416
  7. STILNOCT [Concomitant]
     Active Substance: ZOLPIDEM TARTRATE
     Dosage: 10 MG, QD
     Route: 048
     Dates: start: 202004
  8. URSOFALK [Concomitant]
     Active Substance: URSODIOL
     Dosage: 500 MG, BID
     Route: 048
     Dates: start: 20120124, end: 20200426
  9. OBETICHOLIC ACID [Suspect]
     Active Substance: OBETICHOLIC ACID
     Dosage: 10 MG, QD
     Route: 048
     Dates: start: 20180703, end: 20200211
  10. OBETICHOLIC ACID [Suspect]
     Active Substance: OBETICHOLIC ACID
     Dosage: 5 MG, QD
     Route: 048
     Dates: start: 202002, end: 20200417
  11. EULITOP                            /00022701/ [Concomitant]
     Active Substance: ETHINYL ESTRADIOL\LEVONORGESTREL
     Dosage: 400 MG, QD
     Route: 048
     Dates: start: 20180703

REACTIONS (8)
  - Biliary tract dilation procedure [Unknown]
  - Therapy interrupted [Recovered/Resolved]
  - COVID-19 [Not Recovered/Not Resolved]
  - Discomfort [Unknown]
  - Inflammation [Unknown]
  - Pancreatic stent placement [Unknown]
  - Varices oesophageal [Unknown]
  - Jaundice cholestatic [Not Recovered/Not Resolved]

NARRATIVE: CASE EVENT DATE: 20200415
